FAERS Safety Report 8765411 (Version 3)
Quarter: 2012Q4

REPORT INFORMATION
  Report Type: Report from Study
  Country: GB (occurrence: GB)
  Receive Date: 20120831
  Receipt Date: 20121016
  Transmission Date: 20130627
  Serious: Yes (Life-Threatening, Hospitalization)
  Sender: FDA-Public Use
  Company Number: GB-TEVA-356544USA

PATIENT
  Age: 65 Year
  Sex: Female
  Weight: 96.7 kg

DRUGS (14)
  1. TREANDA [Suspect]
     Indication: NON-HODGKIN^S LYMPHOMA UNSPECIFIED HISTOLOGY INDOLENT
     Route: 042
     Dates: start: 20120523
  2. AFUTUZUMAB [Suspect]
     Indication: NON-HODGKIN^S LYMPHOMA UNSPECIFIED HISTOLOGY INDOLENT
     Dosage: Unknown/D
     Route: 042
     Dates: start: 20120523
  3. PREDNISOLONE [Suspect]
     Indication: NON-HODGKIN^S LYMPHOMA UNSPECIFIED HISTOLOGY INDOLENT
     Dosage: 4.7619 Milligram Daily;
     Route: 048
     Dates: start: 20120523
  4. ONDANSETRON [Concomitant]
     Indication: NAUSEA
  5. METOCLOPRAMIDE [Concomitant]
     Indication: NAUSEA
  6. ALLOPURINOL [Concomitant]
  7. FOLIC ACID [Concomitant]
     Indication: HAEMOLYSIS
  8. FOLIC ACID [Concomitant]
     Indication: PROPHYLAXIS
  9. DALTEPARIN SODIUM [Concomitant]
     Indication: PROPHYLAXIS
     Dates: start: 20120518, end: 20120601
  10. DALTEPARIN SODIUM [Concomitant]
     Indication: DEEP VEIN THROMBOSIS
  11. DALTEPARIN SODIUM [Concomitant]
     Indication: PULMONARY EMBOLISM
  12. ACYCLOVIR [Concomitant]
     Indication: ANTIVIRAL PROPHYLAXIS
     Dates: start: 20120523
  13. LACTULOSE [Concomitant]
     Indication: CONSTIPATION
     Dates: start: 20120525, end: 20120601
  14. SENNA [Concomitant]
     Indication: CONSTIPATION
     Dates: start: 20120525

REACTIONS (3)
  - Pulmonary oedema [Recovered/Resolved]
  - Infusion related reaction [Recovered/Resolved]
  - Dyspnoea [Recovered/Resolved]
